FAERS Safety Report 9354086 (Version 1)
Quarter: 2013Q2

REPORT INFORMATION
  Report Type: Spontaneous
  Country: US (occurrence: US)
  Receive Date: 20130618
  Receipt Date: 20130618
  Transmission Date: 20140414
  Serious: Yes (Hospitalization)
  Sender: FDA-Public Use
  Company Number: US-GLAXOSMITHKLINE-A0690183A

PATIENT
  Age: 47 Year
  Sex: Male

DRUGS (5)
  1. AVANDIA [Suspect]
     Indication: TYPE 2 DIABETES MELLITUS
     Dosage: 4MG TWICE PER DAY
     Route: 048
     Dates: start: 200609, end: 200705
  2. GLUCOVANCE [Concomitant]
     Dates: start: 20061020
  3. TRICOR [Concomitant]
     Dosage: 160MG PER DAY
  4. ASPIRIN [Concomitant]
  5. GLUCOPHAGE [Concomitant]

REACTIONS (4)
  - Myocardial infarction [Not Recovered/Not Resolved]
  - Pain [Unknown]
  - Injury [Unknown]
  - Chest pain [Unknown]
